FAERS Safety Report 6506310-6 (Version None)
Quarter: 2009Q4

REPORT INFORMATION
  Report Type: 
  Country: None (occurrence: None)
  Receive Date: 20091218
  Receipt Date: 20091214
  Transmission Date: 20100525
  Serious: Yes (Death, Life-Threatening)
  Sender: FDA-Public Use
  Company Number: FR-ELI_LILLY_AND_COMPANY-FR200912003237

PATIENT
  Sex: Male
  Weight: 109.4 kg

DRUGS (8)
  1. DROTRECOGIN ALFA (ACTIVATED) [Suspect]
     Indication: SEPSIS
     Dosage: 24 UG/KG/H
     Route: 042
     Dates: start: 20090331
  2. TAVANIC [Concomitant]
     Indication: SEPSIS
     Dates: start: 20090330
  3. ROCEPHIN [Concomitant]
     Indication: SEPSIS
     Dates: start: 20090330
  4. GENTALLINE [Concomitant]
     Indication: SEPSIS
     Dates: start: 20090330
  5. HYPNOVEL [Concomitant]
     Indication: SEDATIVE THERAPY
     Dates: start: 20090330
  6. SUFENTANIL CITRATE [Concomitant]
     Indication: SEDATIVE THERAPY
     Dates: start: 20090331
  7. DIPRIVAN [Concomitant]
     Indication: SEDATIVE THERAPY
     Dates: start: 20090330
  8. ACTRAPID                           /00030501/ [Concomitant]
     Indication: HYPERGLYCAEMIA
     Dates: start: 20090330

REACTIONS (2)
  - CARDIAC FAILURE [None]
  - GASTROINTESTINAL HAEMORRHAGE [None]
